FAERS Safety Report 7475673-X (Version None)
Quarter: 2011Q2

REPORT INFORMATION
  Report Type: 
  Country: None (occurrence: None)
  Receive Date: 20110504
  Receipt Date: 20110419
  Transmission Date: 20111010
  Serious: Yes (Other)
  Sender: FDA-Public Use
  Company Number: ABR_00036_2011

PATIENT
  Age: 66 Year
  Sex: Male

DRUGS (12)
  1. CEFTRIAXONE-SULBACTUM [Concomitant]
  2. MIDAZOLAM (MIDAZOLAM) [Suspect]
     Indication: SEDATION
     Dosage: SEE IMAGE
  3. ASPIRIN-CLOPRIDOGREL [Concomitant]
  4. ITOPRIDE [Concomitant]
  5. FENTANYL [Concomitant]
  6. METOCLOPRAMIDE HYDROCHLORIDE [Concomitant]
  7. METRONIDAZOLE [Concomitant]
  8. PANTOPRAZOLE SODIUM [Concomitant]
  9. ERYTHROMYCIN [Suspect]
     Indication: ILEUS PARALYTIC
     Dosage: (1000 MG, (250 MG, 1 IN 4 D))
  10. ERYTHROMYCIN [Suspect]
     Indication: ENTERAL NUTRITION
     Dosage: (1000 MG, (250 MG, 1 IN 4 D))
  11. VECURONIUM BROMIDE [Concomitant]
  12. ENOXAPARIN [Concomitant]

REACTIONS (10)
  - DRUG INTERACTION [None]
  - SEDATION [None]
  - UNRESPONSIVE TO STIMULI [None]
  - TACHYCARDIA [None]
  - HAEMODYNAMIC INSTABILITY [None]
  - CEREBROVASCULAR DISORDER [None]
  - DRUG EFFECT PROLONGED [None]
  - RESPIRATORY DISTRESS [None]
  - HYPOXIA [None]
  - METABOLIC ENCEPHALOPATHY [None]
